FAERS Safety Report 21324256 (Version 1)
Quarter: 2022Q3

REPORT INFORMATION
  Report Type: Spontaneous
  Country: US (occurrence: None)
  Receive Date: 20220911
  Receipt Date: 20220911
  Transmission Date: 20221027
  Serious: Yes (Life-Threatening, Hospitalization, Disabling)
  Sender: FDA-Public Use
  Company Number: None

PATIENT
  Age: 45 Year
  Sex: Male

DRUGS (1)
  1. WARFARIN [Suspect]
     Active Substance: WARFARIN
     Indication: Antiphospholipid syndrome
     Dosage: FREQUENCY : DAILY;?
     Route: 048

REACTIONS (4)
  - Subdural haematoma [None]
  - International normalised ratio increased [None]
  - Visual impairment [None]
  - Hemiparesis [None]

NARRATIVE: CASE EVENT DATE: 20220814
